FAERS Safety Report 25044635 (Version 2)
Quarter: 2025Q1

REPORT INFORMATION
  Report Type: Spontaneous
  Country: ES (occurrence: ES)
  Receive Date: 20250306
  Receipt Date: 20250319
  Transmission Date: 20250408
  Serious: Yes (Other)
  Sender: TEVA
  Company Number: ES-TEVA-VS-3304537

PATIENT
  Age: 5 Month
  Sex: Female

DRUGS (16)
  1. CARBOPLATIN [Suspect]
     Active Substance: CARBOPLATIN
     Indication: Congenital retinoblastoma
     Route: 065
  2. ETOPOSIDE [Suspect]
     Active Substance: ETOPOSIDE
     Indication: Congenital retinoblastoma
     Dosage: DAY FOR 3?DAYS
     Route: 042
  3. CISPLATIN [Suspect]
     Active Substance: CISPLATIN
     Indication: Congenital retinoblastoma
     Route: 065
  4. THIOTEPA [Suspect]
     Active Substance: THIOTEPA
     Indication: Congenital retinoblastoma
     Dosage: FOR 1?DAY,
     Route: 042
  5. IDARUBICIN [Concomitant]
     Active Substance: IDARUBICIN
     Indication: Congenital retinoblastoma
     Route: 065
  6. IFOSFAMIDE [Suspect]
     Active Substance: IFOSFAMIDE
     Indication: Congenital retinoblastoma
     Dosage: 3 G/M2, 3 DAYS FOR 2 CYCLES
     Route: 042
  7. CYCLOPHOSPHAMIDE [Concomitant]
     Active Substance: CYCLOPHOSPHAMIDE
     Indication: Congenital retinoblastoma
     Route: 042
  8. DOXORUBICIN [Suspect]
     Active Substance: DOXORUBICIN
     Indication: Congenital retinoblastoma
     Dosage: FOR 2?DAYS
     Route: 065
  9. TOPOTECAN [Concomitant]
     Active Substance: TOPOTECAN HYDROCHLORIDE
     Indication: Congenital retinoblastoma
     Route: 037
  10. TOPOTECAN [Concomitant]
     Active Substance: TOPOTECAN HYDROCHLORIDE
     Indication: Congenital retinoblastoma
     Route: 050
  11. TOPOTECAN [Concomitant]
     Active Substance: TOPOTECAN HYDROCHLORIDE
     Indication: Congenital retinoblastoma
     Route: 013
  12. SARGRAMOSTIM [Suspect]
     Active Substance: SARGRAMOSTIM
     Indication: Congenital retinoblastoma
     Dosage: ON DAYS 0-5
     Route: 058
  13. MELPHALAN [Concomitant]
     Active Substance: MELPHALAN
     Indication: Congenital retinoblastoma
     Route: 013
  14. VINCRISTINE [Concomitant]
     Active Substance: VINCRISTINE
     Indication: Congenital retinoblastoma
     Route: 042
  15. NAXITAMAB [Suspect]
     Active Substance: NAXITAMAB
     Indication: Congenital retinoblastoma
     Dosage: ON DAYS 1, 3 AND 5
     Route: 042
  16. NAXITAMAB [Suspect]
     Active Substance: NAXITAMAB
     Indication: Congenital retinoblastoma
     Dosage: ON DAY?4
     Route: 042

REACTIONS (7)
  - Blindness [Unknown]
  - Drug hypersensitivity [Unknown]
  - Urticaria [Unknown]
  - Hypotension [Unknown]
  - Nephropathy [Unknown]
  - Pain [Unknown]
  - Deafness [Unknown]
